FAERS Safety Report 8501884-8 (Version None)
Quarter: 2012Q3

REPORT INFORMATION
  Report Type: 
  Country: None (occurrence: None)
  Receive Date: 20120711
  Receipt Date: 20120706
  Transmission Date: 20120928
  Serious: Yes (Hospitalization)
  Sender: FDA-Public Use
  Company Number: PHHO2012FR010167

PATIENT
  Sex: Male
  Weight: 80 kg

DRUGS (5)
  1. VALGANCICLOVIR [Concomitant]
     Indication: PROPHYLAXIS
     Dosage: 900 MG, DAY
     Dates: end: 20101119
  2. MYCOPHENOLIC ACID [Suspect]
     Dosage: 1440 MG, DAY
     Route: 048
     Dates: start: 20101110, end: 20101121
  3. MYCOPHENOLIC ACID [Suspect]
     Indication: RENAL TRANSPLANT
     Dosage: 1440 MG, DAY
     Route: 048
     Dates: start: 20100820, end: 20101109
  4. MYCOPHENOLIC ACID [Suspect]
     Dosage: NO TREATMENT
     Dates: start: 20101122
  5. NEORAL [Suspect]
     Indication: RENAL TRANSPLANT

REACTIONS (1)
  - AGRANULOCYTOSIS [None]
